FAERS Safety Report 11757656 (Version 2)
Quarter: 2015Q4

REPORT INFORMATION
  Report Type: Spontaneous
  Country: None (occurrence: US)
  Receive Date: 20151120
  Receipt Date: 20151120
  Transmission Date: 20160304
  Serious: No
  Sender: FDA-Public Use
  Company Number: US-ALK-ABELLO A/S-1044456

PATIENT
  Age: 6 Year
  Sex: Female

DRUGS (3)
  1. COMMON PAPER WASP VENOM PROTEIN [Suspect]
     Active Substance: POLISTES FUSCATUS VENOM PROTEIN
     Route: 058
  2. FIRE ANT [Suspect]
     Active Substance: SOLENOPSIS INVICTA
     Route: 058
  3. VENOMS, MIXED VESPID VENOM PROTEIN [Suspect]
     Active Substance: DOLICHOVESPULA ARENARIA VENOM PROTEIN\ DOLICHOVESPULA MACULATA VENOM PROTEIN\ VESPULA MACULIFRONS VENOM PROTEIN
     Route: 058

REACTIONS (1)
  - Off label use [None]
